FAERS Safety Report 6091353-X (Version None)
Quarter: 2009Q1

REPORT INFORMATION
  Report Type: 
  Country: None (occurrence: None)
  Receive Date: 20090219
  Receipt Date: 20090219
  Transmission Date: 20090719
  Serious: No
  Sender: FDA-Public Use
  Company Number: None

PATIENT
  Sex: Male
  Weight: 124.7392 kg

DRUGS (1)
  1. MELOXICAM [Suspect]
     Indication: BACK PAIN
     Dosage: 7.5 MG 2/DAY ORAL
     Route: 048
     Dates: start: 20090128, end: 20090129

REACTIONS (1)
  - VERTIGO [None]
